FAERS Safety Report 25187832 (Version 2)
Quarter: 2025Q2

REPORT INFORMATION
  Report Type: Spontaneous
  Country: US (occurrence: US)
  Receive Date: 20250411
  Receipt Date: 20250526
  Transmission Date: 20250716
  Serious: Yes (Other)
  Sender: AUROBINDO
  Company Number: US-AUROBINDO-AUR-APL-2025-018256

PATIENT
  Sex: Male

DRUGS (1)
  1. VALACYCLOVIR HYDROCHLORIDE [Suspect]
     Active Substance: VALACYCLOVIR HYDROCHLORIDE
     Indication: Product used for unknown indication
     Route: 065

REACTIONS (10)
  - Choking [Unknown]
  - Asthenia [Unknown]
  - Vomiting [Unknown]
  - Choking sensation [Unknown]
  - Dysphagia [Unknown]
  - Nausea [Unknown]
  - Retching [Unknown]
  - Product size issue [Unknown]
  - Product use complaint [Unknown]
  - Wrong technique in product usage process [Unknown]
